FAERS Safety Report 4413440-1 (Version None)
Quarter: 2004Q3

REPORT INFORMATION
  Report Type: 
  Country: None (occurrence: None)
  Receive Date: 20040728
  Receipt Date: 20040713
  Transmission Date: 20050211
  Serious: Yes (Other)
  Sender: FDA-Public Use
  Company Number: 310007M04USA

PATIENT
  Age: 44 Year
  Sex: Female

DRUGS (2)
  1. GONAL-F [Suspect]
     Indication: INFERTILITY
     Dosage: 75 IU, SUBCUTANEOUS
     Route: 058
     Dates: start: 19980101, end: 19980101
  2. CHORIONIC GONADORTOPIN INJ [Suspect]
     Indication: INFERTILITY
     Dosage: 10000 OTHER, 1 IN 1 DAYS, INTRA-MUSCULAR
     Route: 030
     Dates: start: 19981005, end: 19981005

REACTIONS (2)
  - BREAST CANCER [None]
  - PREGNANCY [None]
